FAERS Safety Report 7271245-0 (Version None)
Quarter: 2011Q1

REPORT INFORMATION
  Report Type: 
  Country: None (occurrence: None)
  Receive Date: 20110203
  Receipt Date: 20110121
  Transmission Date: 20110831
  Serious: Yes (Hospitalization)
  Sender: FDA-Public Use
  Company Number: US-ELI_LILLY_AND_COMPANY-US201101005866

PATIENT
  Age: 77 Year
  Sex: Male
  Weight: 90.385 kg

DRUGS (9)
  1. NOVOLOG [Concomitant]
  2. GLUCOPHAGE [Concomitant]
  3. CETUXIMAB [Suspect]
     Indication: BLADDER CANCER
     Dosage: 500 MG/M2, UNK
     Route: 042
     Dates: start: 20100808
  4. CISPLATIN [Suspect]
     Indication: BLADDER CANCER
     Dosage: 70 MG/M2, UNK
     Route: 042
     Dates: start: 20100808
  5. VYTORIN [Concomitant]
  6. GEMCITABINE HYDROCHLORIDE [Suspect]
     Indication: BLADDER CANCER
     Dosage: 800 MG/M2, UNK
     Route: 042
     Dates: start: 20100810
  7. GLUCOTROL [Concomitant]
  8. PROSCAR [Concomitant]
  9. ACCUPRIL [Concomitant]

REACTIONS (2)
  - PULMONARY EMBOLISM [None]
  - DEEP VEIN THROMBOSIS [None]
